FAERS Safety Report 11505573 (Version 1)
Quarter: 2015Q3

REPORT INFORMATION
  Report Type: Spontaneous
  Country: US (occurrence: None)
  Receive Date: 20150911
  Receipt Date: 20150911
  Transmission Date: 20151125
  Serious: Yes (Life-Threatening, Hospitalization)
  Sender: FDA-Public Use
  Company Number: 1713747-2015-999304

PATIENT
  Age: 40 Year
  Sex: Male

DRUGS (3)
  1. LIBERTY CYCLER SET [Concomitant]
     Active Substance: DEVICE
  2. DELFLEX [Suspect]
     Active Substance: CALCIUM CHLORIDE\DEXTROSE MONOHYDRATE\MAGNESIUM CHLORIDE\SODIUM CHLORIDE\SODIUM LACTATE
     Indication: PERITONEAL DIALYSIS
     Route: 033
  3. LIBERTY CYCLER [Concomitant]
     Active Substance: DEVICE

REACTIONS (4)
  - Thermal burn [None]
  - Infection [None]
  - Gastric disorder [None]
  - Septic shock [None]

NARRATIVE: CASE EVENT DATE: 20150822
